FAERS Safety Report 10597013 (Version 1)
Quarter: 2014Q4

REPORT INFORMATION
  Report Type: Spontaneous
  Country: GB (occurrence: GB)
  Receive Date: 20141120
  Receipt Date: 20141120
  Transmission Date: 20150529
  Serious: Yes (Hospitalization)
  Sender: FDA-Public Use
  Company Number: GB-AMGEN-GBRSP2014088743

PATIENT
  Age: 89 Year
  Sex: Female
  Weight: 43 kg

DRUGS (7)
  1. FLUCLOXACILLIN [Concomitant]
     Active Substance: FLUCLOXACILLIN
  2. PARACETAMOL [Concomitant]
     Active Substance: ACETAMINOPHEN
  3. DICLOFENAC [Concomitant]
     Active Substance: DICLOFENAC
  4. QUININE SULFATE. [Concomitant]
     Active Substance: QUININE SULFATE
  5. TRAMADOL [Concomitant]
     Active Substance: TRAMADOL
  6. ADCAL D3 [Concomitant]
     Active Substance: CALCIUM CARBONATE\CHOLECALCIFEROL
  7. PROLIA [Suspect]
     Active Substance: DENOSUMAB
     Indication: OSTEOPOROSIS
     Dosage: 60 MG, UNK
     Route: 058
     Dates: start: 20130403, end: 20131003

REACTIONS (3)
  - Acute kidney injury [Recovered/Resolved]
  - Cellulitis [Unknown]
  - Hypocalcaemia [Recovered/Resolved]

NARRATIVE: CASE EVENT DATE: 20131108
